FAERS Safety Report 7722335-7 (Version None)
Quarter: 2011Q3

REPORT INFORMATION
  Report Type: 
  Country: None (occurrence: None)
  Receive Date: 20110831
  Receipt Date: 20110823
  Transmission Date: 20111222
  Serious: Yes (Hospitalization)
  Sender: FDA-Public Use
  Company Number: US-US-EMD SERONO, INC.-7078635

PATIENT
  Sex: Male
  Weight: 81 kg

DRUGS (5)
  1. SEROSTIM [Suspect]
     Dates: start: 20101201
  2. TRUVADA [Concomitant]
     Route: 048
  3. LEXIVA [Concomitant]
     Route: 048
  4. SEROSTIM [Suspect]
     Indication: PRODUCT USED FOR UNKNOWN INDICATION
     Dosage: 3 MG TO 6 MG
     Dates: start: 20090501
  5. NORVIR [Concomitant]
     Route: 048

REACTIONS (1)
  - ACUTE MYOCARDIAL INFARCTION [None]
